FAERS Safety Report 6686498-7 (Version None)
Quarter: 2010Q2

REPORT INFORMATION
  Report Type: 
  Country: None (occurrence: None)
  Receive Date: 20100419
  Receipt Date: 20100405
  Transmission Date: 20101027
  Serious: Yes (Other)
  Sender: FDA-Public Use
  Company Number: NL-CELGENEUS-114-21880-10040498

PATIENT
  Age: 60 Year
  Sex: Male

DRUGS (3)
  1. REVLIMID [Suspect]
     Route: 048
     Dates: start: 20090301
  2. REVLIMID [Suspect]
     Indication: THROMBOCYTOSIS
  3. RBC TRANSFUSION [Concomitant]
     Indication: DRUG USE FOR UNKNOWN INDICATION
     Dosage: 3 UNITS
     Route: 051

REACTIONS (1)
  - ANAEMIA HAEMOLYTIC AUTOIMMUNE [None]
